FAERS Safety Report 17754278 (Version 1)
Quarter: 2020Q2

REPORT INFORMATION
  Report Type: Spontaneous
  Country: US (occurrence: US)
  Receive Date: 20200506
  Receipt Date: 20200506
  Transmission Date: 20200714
  Serious: No
  Sender: FDA-Public Use
  Company Number: US-ELI_LILLY_AND_COMPANY-US202004011143

PATIENT
  Sex: Female

DRUGS (3)
  1. GALCANEZUMAB [Suspect]
     Active Substance: GALCANEZUMAB
     Dosage: UNK, UNKNOWN
     Route: 065
     Dates: start: 202003
  2. GALCANEZUMAB [Suspect]
     Active Substance: GALCANEZUMAB
     Indication: MIGRAINE
     Dosage: 240 MG, UNKNOWN
     Route: 058
  3. GALCANEZUMAB [Suspect]
     Active Substance: GALCANEZUMAB
     Dosage: 240 MG, UNKNOWN
     Route: 058
     Dates: start: 202004

REACTIONS (8)
  - Muscle spasms [Unknown]
  - Overdose [Unknown]
  - Off label use [Unknown]
  - Dry skin [Unknown]
  - Urinary tract infection [Unknown]
  - Constipation [Unknown]
  - Paraesthesia [Unknown]
  - Drug ineffective [Unknown]
